FAERS Safety Report 7491914-7 (Version None)
Quarter: 2011Q2

REPORT INFORMATION
  Report Type: 
  Country: None (occurrence: None)
  Receive Date: 20110518
  Receipt Date: 20110518
  Transmission Date: 20111010
  Serious: Yes (Hospitalization)
  Sender: FDA-Public Use
  Company Number: None

PATIENT
  Sex: Male
  Weight: 104 kg

DRUGS (15)
  1. LEVAQUIN [Concomitant]
  2. SULFAMETHOXAZOLE AND TRIMETHOPRIM [Concomitant]
  3. FLUDARABINE PHOSPHATE [Suspect]
     Dosage: 545 MG
     Dates: end: 20110114
  4. DETROL [Concomitant]
  5. LOVASTATIN [Concomitant]
  6. RITUXIMAB (MOAB C2B8 ANTI CD20, CHIMERIC) [Suspect]
     Dosage: 3290 MG
     Dates: end: 20110110
  7. PANTOPRAZOLE [Concomitant]
  8. BACTRIM [Concomitant]
  9. NORVASC [Concomitant]
  10. PROTONIX [Concomitant]
  11. MIACALCIN [Concomitant]
  12. ACYCLOVIR [Concomitant]
  13. ALLOPURINOL [Concomitant]
  14. FLUCONAZOLE [Concomitant]
  15. HYCODAN [Concomitant]

REACTIONS (4)
  - APLASIA PURE RED CELL [None]
  - TOXICITY TO VARIOUS AGENTS [None]
  - HAEMOGLOBIN DECREASED [None]
  - FATIGUE [None]
